FAERS Safety Report 8172767 (Version 6)
Quarter: 2012Q4

REPORT INFORMATION
  Report Type: 
  Country: US (occurrence: US)
  Receive Date: 20111007
  Receipt Date: 20121219
  Transmission Date: 20130627
  Serious: Yes (Other)
  Sender: FDA-Public Use
  Company Number: US-GLAXOSMITHKLINE-A0946613A

PATIENT
  Age: 48 Year
  Sex: Female
  Weight: 90.5 kg

DRUGS (6)
  1. AVANDIA [Suspect]
     Indication: TYPE 2 DIABETES MELLITUS
     Dosage: 4MG Per day
     Route: 048
     Dates: start: 20080429, end: 2011
  2. LOVASTATIN [Concomitant]
  3. LISINOPRIL [Concomitant]
  4. JANUVIA [Concomitant]
     Dosage: 100MG Per day
  5. ANTIDIABETIC [Concomitant]
  6. METFORMIN [Concomitant]

REACTIONS (5)
  - Myocardial infarction [Unknown]
  - Diabetes mellitus inadequate control [Unknown]
  - Visual impairment [Unknown]
  - Decreased appetite [Unknown]
  - Weight increased [Unknown]
